FAERS Safety Report 14494833 (Version 1)
Quarter: 2018Q1

REPORT INFORMATION
  Report Type: Spontaneous
  Country: AU (occurrence: AU)
  Receive Date: 20180206
  Receipt Date: 20180206
  Transmission Date: 20180509
  Serious: Yes (Death)
  Sender: FDA-Public Use
  Company Number: AU-FRESENIUS KABI-FK201801520

PATIENT
  Age: 75 Year
  Sex: Female

DRUGS (3)
  1. IMMUNOGLOBULIN IV [Concomitant]
     Active Substance: HUMAN IMMUNOGLOBULIN G
     Indication: NEUROLOGICAL SYMPTOM
     Route: 042
  2. METHYLPREDNISOLONE (MANUFACTURER UNKNOWN) [Suspect]
     Active Substance: METHYLPREDNISOLONE
     Indication: NEUROLOGICAL SYMPTOM
     Route: 042
  3. PREDNISONE. [Suspect]
     Active Substance: PREDNISONE
     Indication: NEUROLOGICAL SYMPTOM
     Route: 048

REACTIONS (3)
  - Myasthenia gravis crisis [Fatal]
  - Respiratory failure [Fatal]
  - Pneumonia [Fatal]
